FAERS Safety Report 4386628-6 (Version None)
Quarter: 2004Q2

REPORT INFORMATION
  Report Type: 
  Country: None (occurrence: None)
  Receive Date: 20040629
  Receipt Date: 20030814
  Transmission Date: 20050107
  Serious: Yes (Hospitalization)
  Sender: FDA-Public Use
  Company Number: BR-ROCHE-344598

PATIENT
  Age: 32 Year
  Sex: Male
  Weight: 57 kg

DRUGS (26)
  1. DACLIZUMAB [Suspect]
     Route: 042
     Dates: start: 20030616, end: 20030729
  2. DACLIZUMAB [Suspect]
     Route: 042
     Dates: start: 20030603, end: 20030603
  3. MYCOPHENOLATE MOFETIL [Suspect]
     Route: 048
     Dates: start: 20030602, end: 20030804
  4. MYCOPHENOLATE MOFETIL [Suspect]
     Route: 048
     Dates: start: 20030805, end: 20030808
  5. MYCOPHENOLATE MOFETIL [Suspect]
     Route: 048
     Dates: start: 20030809, end: 20030811
  6. MYCOPHENOLATE MOFETIL [Suspect]
     Route: 048
     Dates: start: 20030821
  7. TACROLIMUS [Suspect]
     Route: 048
     Dates: start: 20030602, end: 20030604
  8. TACROLIMUS [Suspect]
     Route: 048
     Dates: start: 20030605, end: 20030611
  9. TACROLIMUS [Suspect]
     Route: 048
     Dates: start: 20030612, end: 20030630
  10. TACROLIMUS [Suspect]
     Route: 048
     Dates: start: 20030702, end: 20030714
  11. TACROLIMUS [Suspect]
     Route: 048
     Dates: start: 20030715, end: 20030807
  12. TACROLIMUS [Suspect]
     Route: 048
     Dates: start: 20030808, end: 20030825
  13. TACROLIMUS [Suspect]
     Route: 048
     Dates: start: 20030826, end: 20030828
  14. TACROLIMUS [Suspect]
     Route: 048
     Dates: start: 20030829
  15. PREDNISONE [Suspect]
     Route: 048
     Dates: start: 20030606, end: 20030610
  16. PREDNISONE [Suspect]
     Route: 048
     Dates: start: 20030611, end: 20030616
  17. PREDNISONE [Suspect]
     Route: 048
     Dates: start: 20030617, end: 20030903
  18. PREDNISONE [Suspect]
     Route: 048
     Dates: start: 20030904, end: 20031003
  19. PREDNISONE [Suspect]
     Route: 048
     Dates: start: 20031004
  20. METHYLPREDNISOLONE [Suspect]
     Route: 042
     Dates: start: 20030602, end: 20030602
  21. METHYLPREDNISOLONE [Suspect]
     Route: 042
     Dates: start: 20030603, end: 20030603
  22. METHYLPREDNISOLONE [Suspect]
     Route: 042
     Dates: start: 20030604, end: 20030604
  23. AMLODIPINE [Concomitant]
     Indication: DRUG USE FOR UNKNOWN INDICATION
     Route: 048
     Dates: start: 20030603
  24. ATENOLOL [Concomitant]
     Indication: DRUG USE FOR UNKNOWN INDICATION
     Route: 048
     Dates: start: 20030603
  25. OMEPRAZOLE [Concomitant]
     Indication: DRUG USE FOR UNKNOWN INDICATION
     Route: 048
     Dates: start: 20030603
  26. SULFAMETOXAZOL [Concomitant]
     Indication: DRUG USE FOR UNKNOWN INDICATION
     Route: 048
     Dates: start: 20030606

REACTIONS (4)
  - CYTOMEGALOVIRUS INFECTION [None]
  - HYPOTENSION [None]
  - PERITONITIS [None]
  - SERRATIA INFECTION [None]
